FAERS Safety Report 25004995 (Version 1)
Quarter: 2025Q1

REPORT INFORMATION
  Report Type: Spontaneous
  Country: US (occurrence: US)
  Receive Date: 20250224
  Receipt Date: 20250224
  Transmission Date: 20250409
  Serious: Yes (Other)
  Sender: LANTHEUS MEDICAL IMAGING
  Company Number: US-LANTHEUS-LMI-2024-01392

PATIENT
  Age: 57 Year
  Sex: Male
  Weight: 94 kg

DRUGS (9)
  1. DEFINITY [Suspect]
     Active Substance: PERFLUTREN
     Indication: Echocardiogram
     Route: 042
     Dates: start: 20241022, end: 20241022
  2. ENTRESTO [Concomitant]
     Active Substance: SACUBITRIL\VALSARTAN
     Indication: Product used for unknown indication
  3. LASIX [Concomitant]
     Active Substance: FUROSEMIDE
     Indication: Product used for unknown indication
  4. COUMADIN [Concomitant]
     Active Substance: WARFARIN SODIUM
     Indication: Product used for unknown indication
  5. POTASSIUM CHLORIDE [Concomitant]
     Active Substance: POTASSIUM CHLORIDE
     Indication: Product used for unknown indication
  6. ALDACTONE [Concomitant]
     Active Substance: SPIRONOLACTONE
     Indication: Product used for unknown indication
  7. COREG [Concomitant]
     Active Substance: CARVEDILOL
     Indication: Product used for unknown indication
  8. LIPITOR [Concomitant]
     Active Substance: ATORVASTATIN CALCIUM
     Indication: Product used for unknown indication
  9. VITAMINS [Concomitant]
     Active Substance: VITAMINS
     Indication: Product used for unknown indication

REACTIONS (11)
  - Unresponsive to stimuli [Recovered/Resolved]
  - Tachycardia [Recovered/Resolved]
  - Eye movement disorder [Recovered/Resolved]
  - Confusional state [Recovered/Resolved]
  - Dysarthria [Recovered/Resolved]
  - Chest discomfort [Recovered/Resolved]
  - Dizziness [Recovered/Resolved]
  - Feeling hot [Recovered/Resolved]
  - Flushing [Recovered/Resolved]
  - Presyncope [Recovered/Resolved]
  - Blood pressure decreased [Recovered/Resolved]

NARRATIVE: CASE EVENT DATE: 20241022
